FAERS Safety Report 11876142 (Version 1)
Quarter: 2015Q4

REPORT INFORMATION
  Report Type: Spontaneous
  Country: US (occurrence: US)
  Receive Date: 20151229
  Receipt Date: 20151229
  Transmission Date: 20160305
  Serious: No
  Sender: FDA-Public Use
  Company Number: US-ENDO PHARMACEUTICALS INC.-2015-001419

PATIENT
  Age: 72 Year
  Sex: Male
  Weight: 95.34 kg

DRUGS (1)
  1. GLIMEPIRIDE TABLETS 2MG [Suspect]
     Active Substance: GLIMEPIRIDE
     Indication: BLOOD GLUCOSE DECREASED
     Route: 048
     Dates: start: 20150309

REACTIONS (1)
  - Drug ineffective [Not Recovered/Not Resolved]

NARRATIVE: CASE EVENT DATE: 201503
